FAERS Safety Report 22189146 (Version 2)
Quarter: 2023Q2

REPORT INFORMATION
  Report Type: Report from Study
  Country: US (occurrence: US)
  Receive Date: 20230410
  Receipt Date: 20230614
  Transmission Date: 20230721
  Serious: Yes (Other)
  Sender: FDA-Public Use
  Company Number: US-ABBVIE-4301173

PATIENT
  Sex: Female

DRUGS (3)
  1. HUMIRA [Suspect]
     Active Substance: ADALIMUMAB
     Indication: Rheumatoid arthritis
     Route: 058
     Dates: start: 20180313, end: 20230103
  2. HUMIRA [Suspect]
     Active Substance: ADALIMUMAB
     Route: 058
     Dates: start: 20230501
  3. HUMIRA [Suspect]
     Active Substance: ADALIMUMAB
     Route: 058
     Dates: start: 20180309

REACTIONS (10)
  - Gastrointestinal disorder [Not Recovered/Not Resolved]
  - Fibromyalgia [Unknown]
  - Surgery [Unknown]
  - Rheumatoid arthritis [Unknown]
  - Tooth disorder [Unknown]
  - Thinking abnormal [Unknown]
  - Fatigue [Unknown]
  - Osteomyelitis [Unknown]
  - Drain removal [Unknown]
  - Feeling abnormal [Unknown]

NARRATIVE: CASE EVENT DATE: 20230101
